FAERS Safety Report 16470534 (Version 1)
Quarter: 2019Q2

REPORT INFORMATION
  Report Type: Spontaneous
  Country: US (occurrence: US)
  Receive Date: 20190624
  Receipt Date: 20190624
  Transmission Date: 20190711
  Serious: Yes (Other)
  Sender: FDA-Public Use
  Company Number: US-PARI RESPIRATORY EQUIPMENT, INC.-2019PAR00053

PATIENT
  Age: 59 Year
  Sex: Male
  Weight: 78.6 kg

DRUGS (7)
  1. CEFEPIME [Concomitant]
     Active Substance: CEFEPIME HYDROCHLORIDE
     Indication: POSTOPERATIVE WOUND INFECTION
     Route: 051
  2. VANCOMYCIN [Suspect]
     Active Substance: VANCOMYCIN
     Dosage: BEADS WITH APPROXIMATELY 3.9-4.13 MG
     Route: 065
  3. VANCOMYCIN [Suspect]
     Active Substance: VANCOMYCIN
     Indication: POSTOPERATIVE WOUND INFECTION
     Dosage: 1.25 G EVERY 12 HOURS
     Route: 051
  4. TOBRAMYCIN. [Suspect]
     Active Substance: TOBRAMYCIN
     Indication: POSTOPERATIVE WOUND INFECTION
     Dosage: BEADS WITH APPROXIMATELY 1.02 MG
     Route: 065
  5. VANCOMYCIN [Suspect]
     Active Substance: VANCOMYCIN
     Dosage: 1.5 G EVERY 12 HOURS
     Route: 051
  6. VANCOMYCIN [Suspect]
     Active Substance: VANCOMYCIN
     Dosage: ACHIEVE GOAL OF 15-20 MCG/ML
     Route: 051
  7. ADALIMUMAB [Concomitant]
     Active Substance: ADALIMUMAB
     Indication: ANKYLOSING SPONDYLITIS
     Route: 065

REACTIONS (2)
  - Renal tubular necrosis [Recovered/Resolved]
  - Toxicity to various agents [Recovered/Resolved]
